FAERS Safety Report 7045677-X (Version None)
Quarter: 2010Q4

REPORT INFORMATION
  Report Type: 
  Country: None (occurrence: None)
  Receive Date: 20101014
  Receipt Date: 20101012
  Transmission Date: 20110411
  Serious: Yes (Death)
  Sender: FDA-Public Use
  Company Number: US-GILEAD-2010-0032493

PATIENT
  Age: 75 Year
  Sex: Female
  Weight: 93.07 kg

DRUGS (18)
  1. LETAIRIS [Suspect]
     Indication: PULMONARY ARTERIAL HYPERTENSION
     Route: 048
     Dates: start: 20100222
  2. REVATIO [Concomitant]
  3. COUMADIN [Concomitant]
  4. LASIX [Concomitant]
  5. TENORMIN [Concomitant]
  6. TESSALON PEARLE [Concomitant]
  7. LIPITOR [Concomitant]
  8. ALBUTEROL [Concomitant]
  9. PROCRIT [Concomitant]
  10. MELATONIN [Concomitant]
  11. MULTIVITAMIN [Concomitant]
  12. VASOTEC [Concomitant]
  13. TYLENOL [Concomitant]
  14. VICODIN [Concomitant]
  15. MYLANTA [Concomitant]
  16. MILK OF MAGNESIA TAB [Concomitant]
  17. COLACE [Concomitant]
  18. MAGNESIUM OXIDE [Concomitant]

REACTIONS (1)
  - DEATH [None]
